FAERS Safety Report 5407928-4 (Version None)
Quarter: 2007Q3

REPORT INFORMATION
  Report Type: 
  Country: None (occurrence: None)
  Receive Date: 20070803
  Receipt Date: 20070730
  Transmission Date: 20080115
  Serious: Yes (Disabling)
  Sender: FDA-Public Use
  Company Number: 2007SP013926

PATIENT
  Age: 57 Year
  Sex: Female
  Weight: 72.5755 kg

DRUGS (17)
  1. PEG-INTRON [Suspect]
     Indication: HEPATITIS C
     Dosage: 96 MCG; QW; SC
     Route: 058
     Dates: start: 20050506, end: 20060406
  2. PEG-INTRON [Suspect]
     Indication: HEPATITIS C
     Dosage: 96 MCG; QW; SC
     Route: 058
     Dates: start: 20070202
  3. RIBAVIRIN [Suspect]
     Indication: HEPATITIS C
     Dosage: PO
     Route: 048
     Dates: start: 20050506, end: 20060406
  4. ATENOLOL [Concomitant]
  5. ATIVAN [Concomitant]
  6. BUSPAR [Concomitant]
  7. ELAVIL /00002202/ [Concomitant]
  8. ESTRACE [Concomitant]
  9. FIORINAL /01000501/ [Concomitant]
  10. LEXAPRO [Concomitant]
  11. LIPITOR [Concomitant]
  12. LOMOTIL /00034001/ [Concomitant]
  13. PHENERGAN /00033001/ [Concomitant]
  14. TYLENOL EXTRA-STRENGTH [Concomitant]
  15. ZOCOR [Concomitant]
  16. CYMBALTA [Concomitant]
  17. LEVSIN [Concomitant]

REACTIONS (12)
  - ABDOMINAL PAIN UPPER [None]
  - ANXIETY [None]
  - CONDITION AGGRAVATED [None]
  - CRYING [None]
  - DEPRESSION [None]
  - DRY MOUTH [None]
  - DYSPNOEA [None]
  - FATIGUE [None]
  - HYPERTENSION [None]
  - PANIC ATTACK [None]
  - PRODUCTIVE COUGH [None]
  - STRESS [None]
